FAERS Safety Report 10189360 (Version 1)
Quarter: 2014Q2

REPORT INFORMATION
  Report Type: Spontaneous
  Country: US (occurrence: None)
  Receive Date: 20140521
  Receipt Date: 20140521
  Transmission Date: 20141212
  Serious: Yes (Disabling)
  Sender: FDA-Public Use
  Company Number: None

PATIENT
  Age: 60 Year
  Sex: Female
  Weight: 56.7 kg

DRUGS (1)
  1. CIPRO [Suspect]
     Indication: URINARY TRACT INFECTION
     Route: 048

REACTIONS (9)
  - Pain in extremity [None]
  - Muscular weakness [None]
  - Sleep disorder [None]
  - Discomfort [None]
  - Tendon pain [None]
  - Pain in extremity [None]
  - Abasia [None]
  - Muscle tightness [None]
  - Tendonitis [None]
